FAERS Safety Report 10242546 (Version 1)
Quarter: 2014Q2

REPORT INFORMATION
  Report Type: Spontaneous
  Country: FR (occurrence: FR)
  Receive Date: 20140617
  Receipt Date: 20140617
  Transmission Date: 20141212
  Serious: Yes (Hospitalization)
  Sender: FDA-Public Use
  Company Number: FR-009507513-1406FRA007957

PATIENT
  Age: 66 Year
  Sex: Female

DRUGS (2)
  1. FOSAVANCE [Suspect]
     Dosage: UNK
     Route: 048
     Dates: start: 2005, end: 2010
  2. FOSAMAX [Suspect]
     Dosage: UNK
     Route: 048
     Dates: start: 2006

REACTIONS (1)
  - Osteonecrosis [Unknown]
